FAERS Safety Report 7382014-5 (Version None)
Quarter: 2011Q1

REPORT INFORMATION
  Report Type: 
  Country: None (occurrence: None)
  Receive Date: 20110329
  Receipt Date: 20110323
  Transmission Date: 20110831
  Serious: Yes (Other)
  Sender: FDA-Public Use
  Company Number: GB-PFIZER INC-2011035106

PATIENT
  Age: 69 Year
  Sex: Female
  Weight: 76.2 kg

DRUGS (6)
  1. OMEPRAZOLE [Concomitant]
     Indication: DYSPEPSIA
     Dosage: 20 MG, 1X/DAY
     Route: 048
  2. AMITRIPTYLINE [Concomitant]
     Dosage: 25 MG, 1X/DAY
     Route: 048
  3. TOVIAZ [Suspect]
     Indication: HYPERTONIC BLADDER
     Dosage: 8 MG, 1X/DAY
     Route: 048
     Dates: start: 20101015, end: 20110216
  4. SIMVASTATIN [Concomitant]
     Dosage: 40 MG, 1X/DAY
     Route: 048
  5. SALBUTAMOL [Concomitant]
     Indication: ASTHMA
     Dosage: UNK
     Route: 055
  6. EXEMESTANE [Concomitant]
     Dosage: 25 MG, 1X/DAY
     Route: 048

REACTIONS (5)
  - COUGH [None]
  - MALAISE [None]
  - FATIGUE [None]
  - LUNG DISORDER [None]
  - PULMONARY OEDEMA [None]
